FAERS Safety Report 19268104 (Version 1)
Quarter: 2021Q2

REPORT INFORMATION
  Report Type: Report from Study
  Country: CA (occurrence: CA)
  Receive Date: 20210517
  Receipt Date: 20210517
  Transmission Date: 20210717
  Serious: Yes (Other)
  Sender: FDA-Public Use
  Company Number: CA-PFIZER INC-2021493878

PATIENT
  Age: 69 Year
  Sex: Female

DRUGS (8)
  1. SYNTHROID [Concomitant]
     Active Substance: LEVOTHYROXINE SODIUM
  2. TYLENOL [Concomitant]
     Active Substance: ACETAMINOPHEN
     Indication: PREMEDICATION
     Dosage: 650 MG
     Route: 048
  3. BENADRYL [Concomitant]
     Active Substance: DIPHENHYDRAMINE HYDROCHLORIDE
     Indication: PREMEDICATION
     Dosage: 50 MG
     Route: 048
  4. BRILINTA [Concomitant]
     Active Substance: TICAGRELOR
  5. METOPROLOL. [Concomitant]
     Active Substance: METOPROLOL
  6. RITUXIMAB. [Suspect]
     Active Substance: RITUXIMAB
     Indication: RHEUMATOID ARTHRITIS
     Dosage: 1000 MG
     Route: 042
  7. METHYLPREDNISOLONE SODIUM SUCCINATE. [Concomitant]
     Active Substance: METHYLPREDNISOLONE SODIUM SUCCINATE
     Indication: PREMEDICATION
     Dosage: 100 MG
     Route: 042
  8. ROSUVASTATIN. [Concomitant]
     Active Substance: ROSUVASTATIN
     Route: 058

REACTIONS (1)
  - Wound infection [Not Recovered/Not Resolved]
